FAERS Safety Report 8932963 (Version 2)
Quarter: 2014Q1

REPORT INFORMATION
  Report Type: Report from Study
  Country: NL (occurrence: NL)
  Receive Date: 20121129
  Receipt Date: 20140217
  Transmission Date: 20141002
  Serious: Yes (Death)
  Sender: FDA-Public Use
  Company Number: PHHY2012NL109218

PATIENT
  Sex: Female
  Weight: 76 kg

DRUGS (7)
  1. ZOMETA [Suspect]
     Indication: METASTASES TO BONE
     Dosage: 4 MG, 1 PER 28 DAYS
     Route: 042
     Dates: start: 20121114
  2. ZOMETA [Suspect]
     Indication: BREAST CANCER METASTATIC
  3. OXYCONTIN [Concomitant]
     Dosage: 20 MG, BID
  4. ANASTROZOLE [Concomitant]
     Dosage: UNK UKN, UNK
  5. HALDOL [Concomitant]
     Dosage: 1 MG, BID
  6. METFORMIN [Concomitant]
     Dosage: 500 MG, TID
  7. SIMVASTATIN [Concomitant]
     Dosage: UNK UKN, UNK

REACTIONS (2)
  - Dyspnoea [Fatal]
  - Breast cancer metastatic [Fatal]
